FAERS Safety Report 4916569-4 (Version None)
Quarter: 2006Q1

REPORT INFORMATION
  Report Type: 
  Country: None (occurrence: None)
  Receive Date: 20060220
  Receipt Date: 20051202
  Transmission Date: 20060701
  Serious: Yes (Hospitalization)
  Sender: FDA-Public Use
  Company Number: US-GLAXOSMITHKLINE-A0584467A

PATIENT
  Age: 60 Year
  Sex: Female

DRUGS (17)
  1. AVANDIA [Suspect]
     Dosage: 8MG PER DAY
     Route: 048
     Dates: end: 20051205
  2. TRACLEER [Concomitant]
  3. GUAIFENESIN [Concomitant]
     Route: 065
  4. NADOLOL [Concomitant]
  5. CARDURA [Concomitant]
  6. METFORMIN HCL [Concomitant]
  7. PRILOSEC [Concomitant]
  8. LIPITOR [Concomitant]
  9. ALLEGRA [Concomitant]
  10. SYNTHROID [Concomitant]
  11. PREDNISONE [Concomitant]
  12. NASONEX [Concomitant]
  13. ADVAIR DISKUS 100/50 [Concomitant]
     Route: 055
  14. ALBUTEROL [Concomitant]
  15. FOSAMAX [Concomitant]
  16. RESTASIS [Concomitant]
  17. CALCIUM SUPPLEMENTS [Concomitant]

REACTIONS (11)
  - ARTHRALGIA [None]
  - BRAIN NATRIURETIC PEPTIDE DECREASED [None]
  - CARDIAC FAILURE CONGESTIVE [None]
  - CARDIOMEGALY [None]
  - CHEST DISCOMFORT [None]
  - DYSPNOEA [None]
  - EXERCISE TOLERANCE DECREASED [None]
  - EYELID OEDEMA [None]
  - FATIGUE [None]
  - OEDEMA PERIPHERAL [None]
  - PNEUMONIA [None]
